FAERS Safety Report 5035905-4 (Version None)
Quarter: 2006Q2

REPORT INFORMATION
  Report Type: 
  Country: None (occurrence: None)
  Receive Date: 20060526
  Receipt Date: 20060307
  Transmission Date: 20061013
  Serious: Yes (Life-Threatening, Hospitalization, Disabling, Other)
  Sender: FDA-Public Use
  Company Number: WAES 0603USA01245

PATIENT
  Age: 67 Year
  Sex: Male
  Weight: 86.637 kg

DRUGS (6)
  1. VYTORIN [Suspect]
     Indication: HYPERLIPIDAEMIA
     Dosage: 10-20 MG/DAILY/PO
     Route: 048
     Dates: start: 20050511, end: 20051101
  2. PREVACID [Concomitant]
  3. VASOTEC [Concomitant]
  4. ALLOPURINOL [Concomitant]
  5. COLCHICINE [Concomitant]
  6. DIGOXIN [Concomitant]

REACTIONS (1)
  - PANCREATITIS [None]
